FAERS Safety Report 7467007-1 (Version None)
Quarter: 2011Q2

REPORT INFORMATION
  Report Type: 
  Country: None (occurrence: None)
  Receive Date: 20110509
  Receipt Date: 20110506
  Transmission Date: 20111010
  Serious: Yes (Other)
  Sender: FDA-Public Use
  Company Number: JP-PFIZER INC-2011098261

PATIENT
  Age: 68 Year
  Sex: Male

DRUGS (1)
  1. LYRICA [Suspect]
     Dosage: 300 MG A DAY
     Route: 048
     Dates: start: 20110301

REACTIONS (3)
  - CELL MARKER INCREASED [None]
  - LYMPHOCYTE STIMULATION TEST POSITIVE [None]
  - SURFACTANT PROTEIN INCREASED [None]
